FAERS Safety Report 26018899 (Version 1)
Quarter: 2025Q4

REPORT INFORMATION
  Report Type: Report from Study
  Country: US (occurrence: US)
  Receive Date: 20251110
  Receipt Date: 20251110
  Transmission Date: 20260118
  Serious: Yes (Life-Threatening, Hospitalization, Other)
  Sender: AMGEN
  Company Number: US-AMGEN-USASL2025219922

PATIENT
  Sex: Male

DRUGS (1)
  1. OTEZLA [Suspect]
     Active Substance: APREMILAST
     Indication: Psoriasis
     Route: 065

REACTIONS (7)
  - Sepsis [Unknown]
  - Immunodeficiency [Unknown]
  - Urinary tract infection [Unknown]
  - Mouth ulceration [Recovering/Resolving]
  - Dizziness [Unknown]
  - Nausea [Unknown]
  - Infection [Unknown]
